FAERS Safety Report 15395019 (Version 1)
Quarter: 2018Q3

REPORT INFORMATION
  Report Type: Spontaneous
  Country: US (occurrence: US)
  Receive Date: 20180911
  Receipt Date: 20180911
  Transmission Date: 20181010
  Serious: Yes (Other)
  Sender: FDA-Public Use
  Company Number: None

PATIENT
  Age: 25 Year
  Sex: Female
  Weight: 56.25 kg

DRUGS (1)
  1. NEXPLANON [Suspect]
     Active Substance: ETONOGESTREL
     Dosage: GIVEN INTO/UNDER THE SKIN
     Dates: start: 20180904

REACTIONS (2)
  - Complication of drug implant insertion [None]
  - Complication of device removal [None]

NARRATIVE: CASE EVENT DATE: 20180904
